FAERS Safety Report 15636457 (Version 1)
Quarter: 2018Q4

REPORT INFORMATION
  Report Type: Spontaneous
  Country: BR (occurrence: BR)
  Receive Date: 20181120
  Receipt Date: 20181120
  Transmission Date: 20190205
  Serious: Yes (Hospitalization)
  Sender: FDA-Public Use
  Company Number: BR-TORRENT-00004720

PATIENT
  Age: 49 Year
  Weight: 80 kg

DRUGS (6)
  1. TEQUIN 25 MG [Concomitant]
     Indication: DEPRESSION
     Dosage: 1 TABLET AT NIGHT
     Route: 048
     Dates: start: 201803
  2. INSULIN [Concomitant]
     Active Substance: INSULIN NOS
     Indication: DIABETES MELLITUS
     Dosage: 30 ML ONCE DAY?MORE THAN 2 YEAR
     Route: 058
  3. EXODUS 10 MG [Concomitant]
     Indication: DEPRESSION
     Dosage: 1 TABLET IN THE MORNING ?MORE THAN 1 YEAR
     Route: 048
  4. VICOG [Concomitant]
     Active Substance: VINPOCETINE
     Indication: LABYRINTHITIS
     Dosage: 2 TABLET DAILY
     Route: 048
     Dates: start: 2012
  5. LAMITOR [Concomitant]
     Active Substance: LAMOTRIGINE
     Indication: DEPRESSION
     Dosage: UNKNOWN
  6. LAMITOR CD 50 MG [Suspect]
     Active Substance: LAMOTRIGINE
     Indication: DEPRESSION
     Dosage: 2 TABLETS DAILY
     Route: 048
     Dates: start: 201810

REACTIONS (3)
  - Labyrinthitis [Not Recovered/Not Resolved]
  - Feeling abnormal [Unknown]
  - Product substitution issue [Unknown]

NARRATIVE: CASE EVENT DATE: 20181105
